FAERS Safety Report 5019063-8 (Version None)
Quarter: 2006Q2

REPORT INFORMATION
  Report Type: 
  Country: None (occurrence: None)
  Receive Date: 20060530
  Receipt Date: 20060510
  Transmission Date: 20061013
  Serious: Yes (Hospitalization)
  Sender: FDA-Public Use
  Company Number: 2006-140507-NL

PATIENT
  Age: 24 Year
  Sex: Female
  Weight: 54.4 kg

DRUGS (1)
  1. NUVARING [Suspect]
     Indication: CONTRACEPTION
     Dosage: VAGINAL
     Route: 067
     Dates: start: 20060312, end: 20060316

REACTIONS (15)
  - ARRHYTHMIA [None]
  - CARDIOMYOPATHY [None]
  - DIARRHOEA [None]
  - DISSEMINATED INTRAVASCULAR COAGULATION [None]
  - DIZZINESS [None]
  - EJECTION FRACTION DECREASED [None]
  - INCISION SITE INFECTION [None]
  - PLEURAL EFFUSION [None]
  - POSTPARTUM DISORDER [None]
  - RASH GENERALISED [None]
  - STAPHYLOCOCCAL INFECTION [None]
  - TOXIC SHOCK SYNDROME [None]
  - VAGINAL DISCHARGE [None]
  - WOUND INFECTION [None]
  - WOUND SEPSIS [None]
